FAERS Safety Report 9333179 (Version 1)
Quarter: 2013Q2

REPORT INFORMATION
  Report Type: Spontaneous
  Country: US (occurrence: None)
  Receive Date: 20130604
  Receipt Date: 20130604
  Transmission Date: 20140414
  Serious: Yes (Hospitalization, Other)
  Sender: FDA-Public Use
  Company Number: 2012-003436

PATIENT
  Age: 72 Year
  Sex: Female

DRUGS (7)
  1. ACTONEL [Suspect]
     Indication: OSTEOPOROSIS
     Route: 048
     Dates: end: 200703
  2. FOSAMAX (ALENDRONATE SODIUM) [Suspect]
     Indication: OSTEOPOROSIS
     Route: 048
     Dates: start: 1996
  3. BONIVA (IBANDRONATE SODIUM) [Suspect]
     Indication: OSTEOPOROSIS
     Dosage: ONCE MONTHLY
     Dates: start: 20070318, end: 2012
  4. PRAVACHOL [Concomitant]
  5. ZESTRIL [Concomitant]
  6. CELEBREX [Concomitant]
  7. PROTONIX [Concomitant]

REACTIONS (11)
  - Fall [None]
  - Femur fracture [None]
  - Fracture displacement [None]
  - Pain in extremity [None]
  - Bone disorder [None]
  - Low turnover osteopathy [None]
  - Dyspepsia [None]
  - Arthralgia [None]
  - Asthenia [None]
  - Back pain [None]
  - Hip fracture [None]
